FAERS Safety Report 4611480-0 (Version None)
Quarter: 2005Q1

REPORT INFORMATION
  Report Type: 
  Country: None (occurrence: None)
  Receive Date: 20050317
  Receipt Date: 20020726
  Transmission Date: 20050727
  Serious: Yes (Hospitalization)
  Sender: FDA-Public Use
  Company Number: SE-ROCHE-318300

PATIENT
  Age: 53 Year
  Sex: Male
  Weight: 74.6 kg

DRUGS (14)
  1. DACLIZUMAB [Suspect]
     Route: 042
     Dates: start: 20020511, end: 20020511
  2. DACLIZUMAB [Suspect]
     Dosage: FOR A TOTAL OF 4 DOSES.
     Route: 042
     Dates: start: 20020525, end: 20020705
  3. MYCOPHENOLATE MOFETIL [Suspect]
     Route: 048
     Dates: start: 20020511, end: 20030515
  4. MYCOPHENOLATE MOFETIL [Suspect]
     Dosage: LAST DOSE PRIOR TO AE ON 21 JUNE 2003.
     Route: 048
     Dates: start: 20030516
  5. PROGRAF [Suspect]
     Route: 065
     Dates: start: 20020730
  6. PREDNISOLONE [Concomitant]
     Dosage: 04 JUL 2002 TO 06 JUL 2002: 4 MG; 07 JUL 2002 ONGOING: 10 MG
     Dates: start: 20020704
  7. TRIOBE [Concomitant]
  8. FAMOTIDIN [Concomitant]
     Dates: start: 20020512
  9. AMLODIPINE BESYLATE [Concomitant]
     Dates: start: 20020514
  10. METOPROLOL SUCCINATE [Concomitant]
     Dates: start: 20020515
  11. ENALAPRIL [Concomitant]
     Dosage: PRE-STUDY
  12. CALCIUM CARBONATE [Concomitant]
  13. NYSTATIN [Concomitant]
     Dates: start: 20020512
  14. PIVAMPICILLIN [Concomitant]
     Dates: start: 20020715, end: 20020725

REACTIONS (3)
  - BLOOD CREATININE INCREASED [None]
  - NEPHRITIS [None]
  - SQUAMOUS CELL CARCINOMA [None]
